FAERS Safety Report 9352684 (Version 1)
Quarter: 2013Q2

REPORT INFORMATION
  Report Type: Spontaneous
  Country: US (occurrence: US)
  Receive Date: 20130618
  Receipt Date: 20130618
  Transmission Date: 20140414
  Serious: No
  Sender: FDA-Public Use
  Company Number: US-009507513-1306USA004392

PATIENT
  Age: 74 Year
  Sex: Female

DRUGS (7)
  1. ASMANEX TWISTHALER [Suspect]
     Indication: ASTHMA
     Dosage: 1 PUFF, AT NIGHT
     Route: 055
     Dates: start: 20130603
  2. LISINOPRIL [Concomitant]
  3. METOPROLOL [Concomitant]
  4. AZATHIOPRINE [Concomitant]
  5. LOVASTATIN [Concomitant]
  6. LEVOBUNOLOL HYDROCHLORIDE [Concomitant]
  7. DORZOLAMIDE HYDROCHLORIDE [Concomitant]

REACTIONS (4)
  - Dyspnoea [Not Recovered/Not Resolved]
  - Wheezing [Not Recovered/Not Resolved]
  - Cough [Not Recovered/Not Resolved]
  - Product quality issue [Unknown]
